FAERS Safety Report 9073277 (Version 1)
Quarter: 2013Q1

REPORT INFORMATION
  Report Type: Report from Study
  Country: US (occurrence: US)
  Receive Date: 20130128
  Receipt Date: 20130128
  Transmission Date: 20140127
  Serious: No
  Sender: FDA-Public Use
  Company Number: US-ABBOTT-12P-163-0903668-00

PATIENT
  Sex: Female
  Weight: 77.18 kg

DRUGS (5)
  1. HUMIRA 40 MG/0.8 ML PEN [Suspect]
     Indication: CROHN^S DISEASE
     Route: 058
     Dates: start: 201201, end: 201201
  2. HUMIRA 40 MG/0.8 ML PEN [Suspect]
     Route: 058
     Dates: start: 201201, end: 201201
  3. HUMIRA 40 MG/0.8 ML PEN [Suspect]
     Route: 058
     Dates: start: 201202
  4. WARFARIN [Concomitant]
     Indication: THROMBOSIS
  5. XANAX [Concomitant]
     Indication: ANXIETY

REACTIONS (1)
  - Alopecia [Not Recovered/Not Resolved]
